FAERS Safety Report 20601385 (Version 5)
Quarter: 2022Q3

REPORT INFORMATION
  Report Type: Report from Study
  Country: US (occurrence: US)
  Receive Date: 20220316
  Receipt Date: 20220802
  Transmission Date: 20221027
  Serious: No
  Sender: FDA-Public Use
  Company Number: US-NOVARTISTESTPH-NVSC2022US059962

PATIENT
  Age: 81 Year
  Sex: Male

DRUGS (4)
  1. ENTRESTO [Suspect]
     Active Substance: SACUBITRIL\VALSARTAN
     Indication: Product used for unknown indication
     Dosage: 1 DOSAGE FORM, BID (24/26 MG)
     Route: 048
     Dates: start: 202201
  2. ENTRESTO [Suspect]
     Active Substance: SACUBITRIL\VALSARTAN
     Dosage: 1 DOSAGE FORM, BID (49/51 MG)
     Route: 048
     Dates: start: 202202
  3. ENTRESTO [Suspect]
     Active Substance: SACUBITRIL\VALSARTAN
     Dosage: 1 DOSAGE FORM, BID (24/26 MG)
     Route: 048
     Dates: start: 20220224
  4. FUROSEMIDE [Concomitant]
     Active Substance: FUROSEMIDE
     Indication: Fluid retention
     Dosage: UNK
     Route: 065

REACTIONS (16)
  - Cardiac disorder [Unknown]
  - Decreased activity [Unknown]
  - Visual impairment [Unknown]
  - Gout [Recovering/Resolving]
  - Joint swelling [Recovering/Resolving]
  - Gait inability [Unknown]
  - Memory impairment [Unknown]
  - Weight increased [Unknown]
  - Skin atrophy [Unknown]
  - Animal bite [Unknown]
  - Pain in extremity [Unknown]
  - Dyspnoea [Unknown]
  - Limb injury [Unknown]
  - Mobility decreased [Unknown]
  - Skin haemorrhage [Unknown]
  - Fall [Unknown]

NARRATIVE: CASE EVENT DATE: 20220301
